FAERS Safety Report 17718480 (Version 1)
Quarter: 2020Q2

REPORT INFORMATION
  Report Type: Spontaneous
  Country: GB (occurrence: GB)
  Receive Date: 20200428
  Receipt Date: 20200428
  Transmission Date: 20200714
  Serious: Yes (Death, Other)
  Sender: FDA-Public Use
  Company Number: GB-MYLANLABS-2020M1041865

PATIENT
  Age: 25 Year
  Sex: Male

DRUGS (1)
  1. CLOZAPINE MYLAN [Suspect]
     Active Substance: CLOZAPINE
     Indication: SCHIZOPHRENIA
     Dosage: 300 MG
     Route: 065

REACTIONS (6)
  - Death [Fatal]
  - Drug level increased [Unknown]
  - Drug abuse [Unknown]
  - Arrhythmia [Unknown]
  - Cardiac arrest [Unknown]
  - Toxicity to various agents [Unknown]
